FAERS Safety Report 4536997-9 (Version None)
Quarter: 2004Q4

REPORT INFORMATION
  Report Type: 
  Country: None (occurrence: None)
  Receive Date: 20041220
  Receipt Date: 20041210
  Transmission Date: 20050328
  Serious: Yes (Hospitalization)
  Sender: FDA-Public Use
  Company Number: 2004-123367-NL

PATIENT
  Age: 35 Year
  Sex: Male

DRUGS (4)
  1. MIRTAZAPINE [Suspect]
     Indication: ANXIETY
     Dosage: 1 DF QD ORAL
     Route: 048
     Dates: start: 20040518
  2. MIRTAZAPINE [Suspect]
     Indication: DEPRESSION
     Dosage: 1 DF QD ORAL
     Route: 048
     Dates: start: 20040518
  3. RISPERIDONE [Suspect]
     Dosage: 1 MG/2 MG ORAL
     Route: 048
     Dates: end: 20041021
  4. RISPERIDONE [Suspect]
     Dosage: 1 MG/2 MG ORAL
     Route: 048
     Dates: start: 20040606

REACTIONS (1)
  - PULMONARY EMBOLISM [None]
